FAERS Safety Report 9541761 (Version 2)
Quarter: 2013Q4

REPORT INFORMATION
  Report Type: Spontaneous
  Country: US (occurrence: US)
  Receive Date: 20130923
  Receipt Date: 20131124
  Transmission Date: 20140711
  Serious: No
  Sender: FDA-Public Use
  Company Number: US-009507513-1309USA002770

PATIENT
  Age: 27 Year
  Sex: Female
  Weight: 142.4 kg

DRUGS (4)
  1. NEXPLANON [Suspect]
     Indication: CONTRACEPTION
     Dosage: 3 YEARS IMPLANT
     Route: 059
     Dates: start: 20130824, end: 20130829
  2. METFORMIN [Concomitant]
  3. FLAGYL [Concomitant]
  4. PRINIVIL [Concomitant]

REACTIONS (5)
  - Complication of device insertion [Recovered/Resolved]
  - Device difficult to use [Recovered/Resolved]
  - Device deployment issue [Recovered/Resolved]
  - Haemorrhage [Unknown]
  - Device expulsion [Recovered/Resolved]
